FAERS Safety Report 24998778 (Version 1)
Quarter: 2025Q1

REPORT INFORMATION
  Report Type: Spontaneous
  Country: US (occurrence: US)
  Receive Date: 20250222
  Receipt Date: 20250222
  Transmission Date: 20250409
  Serious: Yes (Other)
  Sender: AMGEN
  Company Number: US-AMGEN-USASP2025034869

PATIENT
  Age: 79 Year
  Sex: Female

DRUGS (7)
  1. PREDNISONE [Suspect]
     Active Substance: PREDNISONE
     Indication: Rheumatoid arthritis
     Dosage: 3 MILLIGRAM, QD (3 TABLET ONCE A DAY (BEFORE A MEAL) FOR 90 DAYS)
     Route: 048
     Dates: start: 20240722
  2. VITAMIN B12 [Concomitant]
     Active Substance: CYANOCOBALAMIN
     Dosage: UNK UNK, QMO 1 SOLUTION MONTHLY
  3. SERTRALINE [Concomitant]
     Active Substance: SERTRALINE HYDROCHLORIDE
  4. PROVENTIL HFA [Concomitant]
     Active Substance: ALBUTEROL SULFATE
  5. TRAMADOL HCL [Concomitant]
     Active Substance: TRAMADOL HYDROCHLORIDE
     Dosage: 50 MILLIGRAM, BID
     Route: 048
  6. DICYCLOMINE [Concomitant]
     Active Substance: DICYCLOMINE HYDROCHLORIDE
  7. CALCIUM\VITAMIN D [Concomitant]
     Active Substance: CALCIUM\VITAMIN D
     Dosage: UNK UNK, QD

REACTIONS (24)
  - Lumbar vertebral fracture [Unknown]
  - Neuropathy peripheral [Unknown]
  - Spinal fracture [Unknown]
  - Renal impairment [Recovering/Resolving]
  - Complex regional pain syndrome [Unknown]
  - Dyspnoea exertional [Unknown]
  - Joint stiffness [Unknown]
  - Arthralgia [Unknown]
  - Dizziness [Unknown]
  - Abdominal discomfort [Unknown]
  - Diarrhoea [Recovered/Resolved]
  - Postural orthostatic tachycardia syndrome [Recovered/Resolved]
  - Fatigue [Unknown]
  - Nodal osteoarthritis [Unknown]
  - Dyspnoea [Unknown]
  - Muscular weakness [Unknown]
  - Back pain [Unknown]
  - Vasculitis [Unknown]
  - Myalgia [Unknown]
  - Sleep disorder [Unknown]
  - Asthenia [Unknown]
  - Osteoporosis [Unknown]
  - Headache [Unknown]
  - Gastrooesophageal reflux disease [Unknown]
